FAERS Safety Report 13269087 (Version 1)
Quarter: 2017Q1

REPORT INFORMATION
  Report Type: Spontaneous
  Country: US (occurrence: US)
  Receive Date: 20170224
  Receipt Date: 20170224
  Transmission Date: 20170428
  Serious: Yes (Other)
  Sender: FDA-Public Use
  Company Number: US-PFIZER INC-2017070563

PATIENT
  Age: 71 Year
  Sex: Female
  Weight: 74.83 kg

DRUGS (5)
  1. LETROZOLE. [Suspect]
     Active Substance: LETROZOLE
     Dosage: 2.5 MG, DAILY
     Dates: start: 20170110
  2. IBRANCE [Suspect]
     Active Substance: PALBOCICLIB
     Indication: BREAST CANCER METASTATIC
     Dosage: 125 MG, CYCLIC (DAILY,DAY-21 FOF A 28 D CYCLE)
     Dates: start: 20170110, end: 20170131
  3. CALCIUM [Concomitant]
     Active Substance: CALCIUM
     Dosage: UNK
  4. IBRANCE [Suspect]
     Active Substance: PALBOCICLIB
     Dosage: 100 MG, CYCLIC (TAKE 100 MG DAILY ON DAY 1-21 Q 28 DAYS)
     Route: 048
     Dates: start: 20170213
  5. VITAMIN D [Concomitant]
     Active Substance: CHOLECALCIFEROL
     Dosage: UNK

REACTIONS (6)
  - Hydronephrosis [Recovered/Resolved]
  - Neutropenia [Unknown]
  - Paraesthesia [Unknown]
  - Dysuria [Recovering/Resolving]
  - Skin lesion [Unknown]
  - Pelvic discomfort [Recovering/Resolving]
